FAERS Safety Report 23076383 (Version 1)
Quarter: 2023Q4

REPORT INFORMATION
  Report Type: Spontaneous
  Country: GB (occurrence: GB)
  Receive Date: 20231017
  Receipt Date: 20231017
  Transmission Date: 20240110
  Serious: Yes (Disabling)
  Sender: FDA-Public Use
  Company Number: None

PATIENT
  Age: 62 Year
  Sex: Female
  Weight: 37 kg

DRUGS (11)
  1. LEVOFLOXACIN [Suspect]
     Active Substance: LEVOFLOXACIN
     Indication: Product used for unknown indication
     Dosage: 1000 MILLIGRAM DAILY; FOR CHEST, UNIT DOSE : 500 MG, BD, DURATION : 2 WEEKS, THERAPY END DATE : NASK
     Route: 048
     Dates: start: 20230928
  2. CLOTRIMAZOLE [Concomitant]
     Active Substance: CLOTRIMAZOLE
     Indication: Candida infection
     Dosage: 2 DOSAGE FORMS DAILY; UNIT DOSE: 1 DF, BD , DURATION : 7 DAYS
     Dates: start: 20230928, end: 20231005
  3. BECLOMETHASONE DIPROPIONATE [Concomitant]
     Active Substance: BECLOMETHASONE DIPROPIONATE
     Indication: Product used for unknown indication
     Dosage: 4 DOSAGE FORMS DAILY; (ASTHMA PREVENTER), UNIT DOSE : 2 DF, BD
     Dates: start: 20221117
  4. CLOTRIMAZOLE [Concomitant]
     Active Substance: CLOTRIMAZOLE
     Indication: Product used for unknown indication
     Dosage: 1 DOSAGE FORMS DAILY; UNIT DOSE : 1 DF, OD, DURATION : 6 DAYS
     Dates: start: 20230928, end: 20231004
  5. AMOXICILLIN\CLAVULANATE POTASSIUM [Concomitant]
     Active Substance: AMOXICILLIN\CLAVULANATE POTASSIUM
     Indication: Product used for unknown indication
     Dosage: 3 DOSAGE FORMS DAILY; UNIT DOSE : 1 DF, 3 TIMES A DAY, DURATION : 7 DAYS
     Dates: start: 20230921, end: 20230928
  6. DOXYCYCLINE [Concomitant]
     Active Substance: DOXYCYCLINE
     Indication: Product used for unknown indication
     Dosage: 200MG DAILY FOR 1 DOSE THEN 1 DAILY, DURATION : 28 DAYS
     Dates: start: 20230817, end: 20230914
  7. PREDNISOLONE [Concomitant]
     Active Substance: PREDNISOLONE
     Indication: Product used for unknown indication
     Dosage: 6 DOSAGE FORMS DAILY; RESCUE MEDICATION; TAKE SIX TABLETS ONCE DAILY ...DURATION : 6 DAYS
     Dates: start: 20230817, end: 20230823
  8. RISEDRONATE SODIUM [Concomitant]
     Active Substance: RISEDRONATE SODIUM
     Indication: Product used for unknown indication
     Dosage: UNIT DOSE : 1 DF, FREQUENCY : 1 IN 1 WEEK
     Dates: start: 20221117
  9. ALBUTEROL [Concomitant]
     Active Substance: ALBUTEROL
     Indication: Product used for unknown indication
     Dosage: 12 DOSAGE FORMS DAILY; 2 PUFFS EVERY 4 HOURS AS NEEDED FOR SHORTNESS O...
     Dates: start: 20221117
  10. STEXEROL-D3 [Concomitant]
     Indication: Product used for unknown indication
     Dosage: 1 DOSAGE FORMS DAILY; UNIT DOSE : 1 DF, OD
     Dates: start: 20230921
  11. THEICAL-D3 [Concomitant]
     Indication: Product used for unknown indication
     Dosage: 1 DOSAGE FORMS DAILY; EVENING (REPLACES ADCALD3), UNIT DOSE : 1 DF, OD, DURATION : 308 DAYS
     Dates: start: 20221117, end: 20230921

REACTIONS (1)
  - Tendon pain [Recovering/Resolving]

NARRATIVE: CASE EVENT DATE: 20230928
